FAERS Safety Report 8958440 (Version 1)
Quarter: 2012Q4

REPORT INFORMATION
  Report Type: Spontaneous
  Country: US (occurrence: None)
  Receive Date: 20121205
  Receipt Date: 20121205
  Transmission Date: 20130627
  Serious: No
  Sender: FDA-Public Use
  Company Number: None

PATIENT
  Age: 65 Year
  Sex: Male
  Weight: 130 kg

DRUGS (1)
  1. TIOTROPIUM [Suspect]
     Indication: COPD EXACERBATION
     Dosage: 18 MCG EVERY DAY Inhale
     Route: 055
     Dates: start: 20120304, end: 20120808

REACTIONS (1)
  - Urinary retention [None]
